FAERS Safety Report 12356153 (Version 1)
Quarter: 2016Q2

REPORT INFORMATION
  Report Type: Spontaneous
  Country: PL (occurrence: PL)
  Receive Date: 20160511
  Receipt Date: 20160511
  Transmission Date: 20160815
  Serious: Yes (Other)
  Sender: FDA-Public Use
  Company Number: PL-AMGEN-POLSP2016059109

PATIENT
  Age: 68 Year
  Sex: Female

DRUGS (5)
  1. ALKERAN [Concomitant]
     Active Substance: MELPHALAN
     Dosage: 2 MG, 1X1
     Route: 048
     Dates: start: 2016
  2. MITOMYCIN. [Concomitant]
     Active Substance: MITOMYCIN
     Dosage: UNK
     Dates: start: 2016
  3. 5-FLUOROURACIL                     /00098801/ [Concomitant]
     Active Substance: FLUOROURACIL
     Dosage: UNK UNK, Q2WK
     Dates: start: 2016
  4. NEULASTA [Suspect]
     Active Substance: PEGFILGRASTIM
     Indication: PRODUCT USED FOR UNKNOWN INDICATION
     Dosage: UNK, UNK
     Route: 065
  5. ADRIAMYCIN [Concomitant]
     Active Substance: DOXORUBICIN HYDROCHLORIDE
     Dosage: UNK UNK, Q2WK
     Dates: start: 2016

REACTIONS (2)
  - Neutropenia [Unknown]
  - Uterine cancer [Unknown]

NARRATIVE: CASE EVENT DATE: 2016
